FAERS Safety Report 5466484-5 (Version None)
Quarter: 2007Q3

REPORT INFORMATION
  Report Type: 
  Country: None (occurrence: None)
  Receive Date: 20070820
  Receipt Date: 20070606
  Transmission Date: 20080115
  Serious: No
  Sender: FDA-Public Use
  Company Number: WAES 0706USA01058

PATIENT
  Age: 69 Year
  Sex: Female

DRUGS (3)
  1. JANUVIA [Suspect]
     Indication: TYPE 2 DIABETES MELLITUS
     Dosage: 10 MG/DAILY/PO
     Route: 048
     Dates: start: 20070501, end: 20070101
  2. [THERAPY UNSPECIFIED] [Concomitant]
  3. METFORMIN HCL [Concomitant]

REACTIONS (2)
  - ASTHENIA [None]
  - NAUSEA [None]
